FAERS Safety Report 9206894 (Version 1)
Quarter: 2013Q1

REPORT INFORMATION
  Report Type: Spontaneous
  Country: US (occurrence: None)
  Receive Date: 20120713
  Receipt Date: 20120713
  Transmission Date: 20140127
  Serious: Yes (Other)
  Sender: FDA-Public Use
  Company Number: PHEH2012US010821

PATIENT
  Age: 54 Year
  Sex: Male

DRUGS (4)
  1. VALTURNA [Suspect]
     Dates: start: 2009
  2. CARDURA (DOXAZOSIN MESILATE) [Concomitant]
     Dosage: 1 DF, QD
  3. BUMETAMIDE (BUMETANIDE) [Concomitant]
  4. POTASSIUM (POTASSIUM) [Concomitant]

REACTIONS (2)
  - Renal impairment [None]
  - Hepatic enzyme increased [None]
